FAERS Safety Report 10791148 (Version 3)
Quarter: 2015Q2

REPORT INFORMATION
  Report Type: Spontaneous
  Country: US (occurrence: US)
  Receive Date: 20150212
  Receipt Date: 20150402
  Transmission Date: 20150821
  Serious: Yes (Other)
  Sender: FDA-Public Use
  Company Number: US-MYLANLABS-2015M1003667

PATIENT

DRUGS (2)
  1. TOPIRAMATE ZYDUS [Suspect]
     Active Substance: TOPIRAMATE
     Dosage: UNK
  2. SUMATRIPTAN TABLETS, USP [Suspect]
     Active Substance: SUMATRIPTAN
     Dosage: UNK, PRN

REACTIONS (3)
  - Coeliac disease [Not Recovered/Not Resolved]
  - Arthralgia [Not Recovered/Not Resolved]
  - Reaction to drug excipients [Not Recovered/Not Resolved]
